FAERS Safety Report 4688647-9 (Version None)
Quarter: 2005Q2

REPORT INFORMATION
  Report Type: 
  Country: None (occurrence: None)
  Receive Date: 20050610
  Receipt Date: 20050610
  Transmission Date: 20051028
  Serious: Yes (Other)
  Sender: FDA-Public Use
  Company Number: None

PATIENT
  Sex: Female
  Weight: 93.1 kg

DRUGS (3)
  1. TEMODAR [Suspect]
     Indication: GLIOBLASTOMA MULTIFORME
     Dosage: 75 MG/M2 PO X 6 WEEKS DURING RT, FOLLOWED BY 150 MG/M2/DAY PO DAYS 1-5 Q 28 DAYS
     Route: 048
     Dates: start: 20050309
  2. CPT11 [Suspect]
     Indication: GLIOBLASTOMA MULTIFORME
     Dosage: 200 MG /M2 IV DAYS 1 AND 15 Q 28 DAYS
     Route: 042
     Dates: start: 20050309
  3. RADIATION [Suspect]
     Indication: GLIOBLASTOMA MULTIFORME
     Dosage: 2.0 GY X 30 FRACTIONS, 5 DAYS/WEEK X + WEEKS
     Dates: start: 20050309

REACTIONS (14)
  - ASTHENIA [None]
  - DIARRHOEA [None]
  - DIFFICULTY IN WALKING [None]
  - DIZZINESS [None]
  - FALL [None]
  - HAEMOGLOBIN DECREASED [None]
  - HEADACHE [None]
  - HYPOTHYROIDISM [None]
  - INFECTION [None]
  - LEUKOPENIA [None]
  - NAUSEA [None]
  - NEUTROPENIA [None]
  - ORAL INTAKE REDUCED [None]
  - VOMITING [None]
